FAERS Safety Report 6731383-5 (Version None)
Quarter: 2010Q2

REPORT INFORMATION
  Report Type: 
  Country: None (occurrence: None)
  Receive Date: 20100518
  Receipt Date: 20100518
  Transmission Date: 20101027
  Serious: No
  Sender: FDA-Public Use
  Company Number: None

PATIENT
  Age: 32 Year
  Sex: Male
  Weight: 65 kg

DRUGS (2)
  1. ZYRTEC [Suspect]
     Indication: PRURITUS
     Dosage: 10MG DAILY
     Dates: start: 20100415, end: 20100516
  2. ZYRTEC [Suspect]
     Indication: URTICARIA
     Dosage: 10MG DAILY
     Dates: start: 20100415, end: 20100516

REACTIONS (3)
  - PRURITUS [None]
  - SKIN DISCOLOURATION [None]
  - URTICARIA [None]
